FAERS Safety Report 9001618 (Version 2)
Quarter: 2013Q1

REPORT INFORMATION
  Report Type: Report from Study
  Country: FR (occurrence: FR)
  Receive Date: 20130107
  Receipt Date: 20130204
  Transmission Date: 20140127
  Serious: Yes (Life-Threatening, Hospitalization)
  Sender: FDA-Public Use
  Company Number: FR-GILEAD-2013-0067311

PATIENT
  Age: 50 Year
  Sex: Male

DRUGS (6)
  1. ELVITEGRAVIR [Suspect]
     Indication: HIV INFECTION
     Dosage: 85 MG, QD
     Route: 048
     Dates: start: 20090427, end: 20130102
  2. ELVITEGRAVIR [Suspect]
     Dosage: UNK
  3. NORVIR [Suspect]
     Indication: HIV INFECTION
     Dosage: UNK
     Dates: start: 20000615, end: 20130102
  4. PLACEBO [Suspect]
     Indication: HIV INFECTION
  5. VIREAD [Concomitant]
     Indication: HIV INFECTION
     Dosage: UNK
     Dates: start: 20090427, end: 20130102
  6. REYATAZ [Concomitant]
     Indication: HIV INFECTION
     Dosage: UNK
     Dates: start: 20090427, end: 20130102

REACTIONS (1)
  - Pancreatitis [Not Recovered/Not Resolved]
